FAERS Safety Report 6388370-9 (Version None)
Quarter: 2009Q4

REPORT INFORMATION
  Report Type: 
  Country: None (occurrence: None)
  Receive Date: 20091005
  Receipt Date: 20090928
  Transmission Date: 20100525
  Serious: Yes (Hospitalization, Other)
  Sender: FDA-Public Use
  Company Number: US-ELI_LILLY_AND_COMPANY-US200908001477

PATIENT
  Sex: Female
  Weight: 107.94 kg

DRUGS (8)
  1. HUMALOG [Suspect]
     Dosage: UNK, UNK
     Dates: start: 20080301
  2. BYETTA [Concomitant]
     Indication: TYPE 2 DIABETES MELLITUS
     Dosage: 5 UG, 2/D
     Dates: start: 20080225, end: 20080319
  3. BYETTA [Concomitant]
     Dosage: 10 UG, 2/D
     Dates: start: 20080319, end: 20080416
  4. ACE INHIBITOR NOS [Concomitant]
  5. DIURETICS [Concomitant]
  6. DIOVAN HCT [Concomitant]
     Indication: BLOOD PRESSURE
     Dosage: 160 MG, UNK
  7. DIOVAN HCT [Concomitant]
     Dosage: 12.5 MG, UNK
  8. COREG [Concomitant]
     Indication: BLOOD PRESSURE
     Dosage: 6.25 MG, 2/D

REACTIONS (9)
  - ABDOMINAL PAIN UPPER [None]
  - CATARACT [None]
  - EYE HAEMORRHAGE [None]
  - EYE SWELLING [None]
  - HYPERTENSION [None]
  - NAUSEA [None]
  - PANCREATITIS ACUTE [None]
  - VISUAL ACUITY REDUCED [None]
  - WEIGHT INCREASED [None]
